FAERS Safety Report 5145302-9 (Version None)
Quarter: 2006Q4

REPORT INFORMATION
  Report Type: 
  Country: None (occurrence: None)
  Receive Date: 20061101
  Receipt Date: 20061016
  Transmission Date: 20070319
  Serious: Yes (Disabling, Other)
  Sender: FDA-Public Use
  Company Number: 2006001986

PATIENT
  Sex: Female

DRUGS (1)
  1. TARCEVA [Suspect]
     Dosage: UNK, ORAL
     Route: 048

REACTIONS (5)
  - BLINDNESS [None]
  - DEMYELINATION [None]
  - DIARRHOEA [None]
  - OPTIC NERVE DISORDER [None]
  - RASH [None]
